FAERS Safety Report 6287577-9 (Version None)
Quarter: 2009Q3

REPORT INFORMATION
  Report Type: 
  Country: None (occurrence: None)
  Receive Date: 20090727
  Receipt Date: 20090720
  Transmission Date: 20100115
  Serious: Yes (Other)
  Sender: FDA-Public Use
  Company Number: 09US002652

PATIENT
  Age: 35 Year
  Sex: Female
  Weight: 68.9 kg

DRUGS (2)
  1. MUSCLE ULTR CRM 049 (CAMPHOR 4%, MENTHOL 10%, METHYL SALICYLATE 30%) C [Suspect]
     Indication: JOINT SPRAIN
     Dosage: 1 APPLICATION, SINGLE, TOPICAL
     Route: 061
     Dates: start: 20090508, end: 20090508
  2. CONJUGATED ESTROGENS (ESTROGENS CONJUGATED) [Concomitant]

REACTIONS (18)
  - ABASIA [None]
  - APPLICATION SITE BURN [None]
  - APPLICATION SITE DISCOLOURATION [None]
  - APPLICATION SITE ERYTHEMA [None]
  - APPLICATION SITE EXFOLIATION [None]
  - APPLICATION SITE HYPERSENSITIVITY [None]
  - APPLICATION SITE IRRITATION [None]
  - APPLICATION SITE PAIN [None]
  - APPLICATION SITE PARAESTHESIA [None]
  - APPLICATION SITE SCAR [None]
  - APPLICATION SITE VESICLES [None]
  - ARTHRALGIA [None]
  - BURN INFECTION [None]
  - BURNS SECOND DEGREE [None]
  - BURNS THIRD DEGREE [None]
  - IMPAIRED WORK ABILITY [None]
  - PAIN IN EXTREMITY [None]
  - TREATMENT NONCOMPLIANCE [None]
